FAERS Safety Report 18330744 (Version 1)
Quarter: 2020Q3

REPORT INFORMATION
  Report Type: Spontaneous
  Country: US (occurrence: US)
  Receive Date: 20200930
  Receipt Date: 20200930
  Transmission Date: 20201103
  Serious: No
  Sender: FDA-Public Use
  Company Number: US-INDIVIOR US-INDV-126494-2020

PATIENT
  Age: 33 Year
  Sex: Male

DRUGS (1)
  1. SUBLOCADE [Suspect]
     Active Substance: BUPRENORPHINE
     Indication: PRODUCT USED FOR UNKNOWN INDICATION
     Dosage: 300 MILLIGRAM, QMO
     Route: 065
     Dates: start: 20200723

REACTIONS (2)
  - Injection site infection [Recovered/Resolved]
  - Intentional removal of drug delivery system by patient [Recovered/Resolved]

NARRATIVE: CASE EVENT DATE: 20200723
